FAERS Safety Report 7702456-5 (Version None)
Quarter: 2011Q3

REPORT INFORMATION
  Report Type: 
  Country: None (occurrence: None)
  Receive Date: 20110823
  Receipt Date: 20110808
  Transmission Date: 20111222
  Serious: Yes (Hospitalization, Other)
  Sender: FDA-Public Use
  Company Number: DE-RANBAXY-2011RR-46752

PATIENT
  Age: 8 Year
  Sex: Male

DRUGS (3)
  1. PREDNISOLONE [Suspect]
     Indication: NEPHROTIC SYNDROME
     Dosage: 60 MG/M2, UNK
     Route: 065
  2. ACYCLOVIR [Suspect]
     Indication: HERPES ZOSTER
     Dosage: 10 MG/KG, TID
     Route: 042
  3. ACYCLOVIR [Suspect]
     Dosage: 20 MG/KG, TID
     Route: 042

REACTIONS (2)
  - TRANSAMINASES INCREASED [None]
  - HERPES ZOSTER [None]
